FAERS Safety Report 9380395 (Version 1)
Quarter: 2013Q3

REPORT INFORMATION
  Report Type: Report from Study
  Country: US (occurrence: US)
  Receive Date: 20130702
  Receipt Date: 20130702
  Transmission Date: 20140515
  Serious: Yes (Other)
  Sender: FDA-Public Use
  Company Number: US-ABBOTT-13P-163-1109455-00

PATIENT
  Age: 58 Year
  Sex: 0

DRUGS (14)
  1. HUMIRA [Suspect]
     Indication: COLITIS ULCERATIVE
     Route: 058
     Dates: start: 200912, end: 201101
  2. ESTRADIOL [Concomitant]
     Indication: HORMONE REPLACEMENT THERAPY
     Dosage: 1 INJECTION
     Route: 050
  3. ESTRADIOL [Concomitant]
     Indication: HYSTERECTOMY
  4. B 12 [Concomitant]
     Indication: COLITIS
     Route: 050
  5. SODIUM BICARBONATE [Concomitant]
     Indication: GASTROOESOPHAGEAL REFLUX DISEASE
  6. OMEPRAZOLE [Concomitant]
     Indication: GASTROOESOPHAGEAL REFLUX DISEASE
  7. FOLIC ACID [Concomitant]
     Indication: VITAMIN SUPPLEMENTATION
     Dosage: 1MG 4DAY/WEK, 3DAYS/WK TAKES 12TAB, TAKES 2TAB DAILY
  8. METHOTREXATE [Concomitant]
     Indication: RHEUMATOID ARTHRITIS
  9. TEMAZEPAM [Concomitant]
     Indication: INSOMNIA
     Dosage: AT BEDTIME
  10. CELEXA [Concomitant]
     Indication: ANTIDEPRESSANT THERAPY
  11. LISINOPRIL [Concomitant]
     Indication: HYPERTENSION
  12. LAXATIVES [Concomitant]
     Indication: CONSTIPATION
     Dosage: AT BEDTIME
  13. MORPHINE SULFATE [Concomitant]
     Indication: PAIN
  14. MORPHINE SULFATE [Concomitant]
     Indication: RHEUMATOID ARTHRITIS

REACTIONS (6)
  - Gallbladder disorder [Unknown]
  - Animal bite [Unknown]
  - Pyrexia [Unknown]
  - Oedema peripheral [Unknown]
  - Blood cholesterol abnormal [Unknown]
  - Pain [Unknown]
